FAERS Safety Report 21709046 (Version 1)
Quarter: 2022Q4

REPORT INFORMATION
  Report Type: Report from Study
  Country: US (occurrence: US)
  Receive Date: 20221210
  Receipt Date: 20221210
  Transmission Date: 20230113
  Serious: Yes (Other)
  Sender: FDA-Public Use
  Company Number: US-ABBVIE-4226359

PATIENT
  Age: 50 Year
  Sex: Female
  Weight: 86 kg

DRUGS (1)
  1. HUMIRA [Suspect]
     Active Substance: ADALIMUMAB
     Indication: Rheumatoid arthritis
     Dosage: CITRATE FREE, START DATE: AT LEAST TWO YEARS AGO?FORM STRENGTH: 40 MG
     Route: 058

REACTIONS (5)
  - Autoimmune disorder [Unknown]
  - Diverticulitis [Recovered/Resolved]
  - Inflammation [Recovered/Resolved]
  - Rheumatoid arthritis [Unknown]
  - Ovarian cyst [Not Recovered/Not Resolved]

NARRATIVE: CASE EVENT DATE: 20220601
